FAERS Safety Report 13701708 (Version 1)
Quarter: 2017Q2

REPORT INFORMATION
  Report Type: Spontaneous
  Country: US (occurrence: US)
  Receive Date: 20170629
  Receipt Date: 20170629
  Transmission Date: 20170830
  Serious: Yes (Other)
  Sender: FDA-Public Use
  Company Number: US-TEVA-782114USA

PATIENT
  Sex: Male

DRUGS (1)
  1. ALLOPURINOL. [Suspect]
     Active Substance: ALLOPURINOL
     Indication: GOUT
     Dosage: 300 MILLIGRAM DAILY;
     Route: 065

REACTIONS (5)
  - Product counterfeit [Unknown]
  - Product substitution issue [Unknown]
  - Abasia [Unknown]
  - Pain [Unknown]
  - Gout [Unknown]
